FAERS Safety Report 13681931 (Version 1)
Quarter: 2017Q2

REPORT INFORMATION
  Report Type: Spontaneous
  Country: US (occurrence: US)
  Receive Date: 20170622
  Receipt Date: 20170622
  Transmission Date: 20170830
  Serious: Yes (Disabling)
  Sender: FDA-Public Use
  Company Number: None

PATIENT
  Age: 49 Year
  Sex: Female
  Weight: 104.78 kg

DRUGS (15)
  1. METFORMIN [Suspect]
     Active Substance: METFORMIN HYDROCHLORIDE
  2. MELOXICAM 15MG [Suspect]
     Active Substance: MELOXICAM
  3. VENTOLIN HFA [Suspect]
     Active Substance: ALBUTEROL SULFATE
  4. OMEPRAZOLE 20MG [Suspect]
     Active Substance: OMEPRAZOLE
  5. TOVIAZ [Suspect]
     Active Substance: FESOTERODINE FUMARATE
  6. OLANZAPINE 15MG [Suspect]
     Active Substance: OLANZAPINE
  7. PROPRANOLOL 40MG TAB HER [Suspect]
     Active Substance: PROPRANOLOL HYDROCHLORIDE
  8. SIMVASTATIN 20MG TABLET [Suspect]
     Active Substance: SIMVASTATIN
  9. LANTUS [Suspect]
     Active Substance: INSULIN GLARGINE
  10. IBUPROFEN. [Suspect]
     Active Substance: IBUPROFEN
  11. ALPRAZOLAM 0.25MG [Suspect]
     Active Substance: ALPRAZOLAM
  12. ARIPIPRAZOLE 10 MG [Suspect]
     Active Substance: ARIPIPRAZOLE
  13. ESCITALOPRAM [Suspect]
     Active Substance: ESCITALOPRAM OXALATE
  14. DIVALPROEX SODIUM ER [Suspect]
     Active Substance: DIVALPROEX SODIUM
  15. EPIPEN [Suspect]
     Active Substance: EPINEPHRINE

REACTIONS (2)
  - Accidental overdose [None]
  - Brain injury [None]

NARRATIVE: CASE EVENT DATE: 20170425
